FAERS Safety Report 19588426 (Version 1)
Quarter: 2021Q3

REPORT INFORMATION
  Report Type: Spontaneous
  Country: DE (occurrence: DE)
  Receive Date: 20210721
  Receipt Date: 20210721
  Transmission Date: 20211014
  Serious: Yes (Hospitalization)
  Sender: FDA-Public Use
  Company Number: DE-ACCORD-232343

PATIENT
  Age: 85 Year
  Sex: Male
  Weight: 57 kg

DRUGS (4)
  1. FUROSEMIDE. [Suspect]
     Active Substance: FUROSEMIDE
     Indication: PRODUCT USED FOR UNKNOWN INDICATION
     Dosage: 20 MG, 1?1?0?0, TABLETS
     Route: 048
  2. TRIMBOW [Concomitant]
     Active Substance: BECLOMETHASONE DIPROPIONATE\FORMOTEROL FUMARATE\GLYCOPYRROLATE
     Dosage: 87 MICROGRAMS / 5 MICROGRAMS / 9 MICROGRAMS, 9/5/87 UG, 2?0?2?0, METERED DOSE INHALER
     Route: 055
  3. ALLOPURINOL. [Concomitant]
     Active Substance: ALLOPURINOL
     Dosage: 150 MG, 1?0?0?0, TABLET
     Route: 048
  4. BERODUAL [Concomitant]
     Active Substance: FENOTEROL HYDROBROMIDE\IPRATROPIUM BROMIDE
     Dosage: IF NECESSARY, METERED DOSE INHALER
     Route: 055

REACTIONS (3)
  - Renal impairment [Unknown]
  - Dehydration [Unknown]
  - Gastroenteritis [Unknown]
